FAERS Safety Report 8664355 (Version 5)
Quarter: 2013Q1

REPORT INFORMATION
  Report Type: Report from Study
  Country: DE (occurrence: DE)
  Receive Date: 20120713
  Receipt Date: 20130204
  Transmission Date: 20140127
  Serious: Yes (Hospitalization)
  Sender: FDA-Public Use
  Company Number: DE-BRISTOL-MYERS SQUIBB COMPANY-16752826

PATIENT
  Age: 61 Year
  Sex: Male
  Weight: 105 kg

DRUGS (6)
  1. ERBITUX SOLN FOR INF [Suspect]
     Indication: COLORECTAL CANCER METASTATIC
     Dosage: 250MG/M2(35.7143 MG/M2)1IN1WK-10MAY-18MAY12,250MG/M2(35.7143MG/M2)1IN1WK-8JUN-22JUN12
     Route: 042
     Dates: start: 20120503, end: 20120622
  2. 5-FLUOROURACIL [Concomitant]
     Indication: CHEMOTHERAPY
     Dosage: 200MG/M2
     Route: 042
     Dates: start: 20120419, end: 20120524
  3. IRINOTECAN [Concomitant]
     Indication: CHEMOTHERAPY
     Dosage: 12.8571MG/M2
     Route: 042
     Dates: start: 20120419
  4. CALCIUM FOLINATE [Concomitant]
     Indication: CHEMOTHERAPY
     Dosage: 28.5714MG/M2
     Route: 042
     Dates: start: 20120419
  5. RAMIPRIL [Concomitant]
     Indication: HYPERTENSION
     Dosage: TAKEN ON 03MAY12 AND 10MAY12
     Route: 048
     Dates: end: 199501
  6. CORTICOSTEROID [Concomitant]
     Indication: PREMEDICATION
     Dosage: 0.5714MG
     Dates: start: 20120503, end: 20120510

REACTIONS (1)
  - Leriche syndrome [Recovered/Resolved]
